FAERS Safety Report 21640313 (Version 2)
Quarter: 2022Q4

REPORT INFORMATION
  Report Type: Report from Study
  Country: DE (occurrence: DE)
  Receive Date: 20221124
  Receipt Date: 20221125
  Transmission Date: 20230113
  Serious: Yes (Hospitalization)
  Sender: FDA-Public Use
  Company Number: DE-002147023-NVSC2022DE259850

PATIENT
  Sex: Female

DRUGS (9)
  1. RIBOCICLIB [Suspect]
     Active Substance: RIBOCICLIB
     Indication: HER2 positive breast cancer
     Dosage: 600 MG, 3 WEEKS ON, 1 WEEK OFF
     Route: 048
     Dates: start: 20210909, end: 20210918
  2. RIBOCICLIB [Suspect]
     Active Substance: RIBOCICLIB
     Indication: Hormone receptor positive breast cancer
     Dosage: UNK
     Route: 048
     Dates: start: 20210930
  3. TRASTUZUMAB [Suspect]
     Active Substance: TRASTUZUMAB
     Indication: HER2 positive breast cancer
     Dosage: 6 MG/KG, Q3W
     Route: 042
     Dates: start: 20210826
  4. PERTUZUMAB [Suspect]
     Active Substance: PERTUZUMAB
     Indication: Hormone receptor positive breast cancer
     Dosage: 420 MG, Q3W
     Route: 042
     Dates: start: 20210826
  5. PERTUZUMAB [Suspect]
     Active Substance: PERTUZUMAB
     Indication: HER2 positive breast cancer
  6. LOPERAMIDE [Concomitant]
     Active Substance: LOPERAMIDE
     Indication: Product used for unknown indication
     Dosage: DOSE AS REQUIRED
     Route: 065
     Dates: start: 20210923, end: 20210928
  7. ONDANSETRON [Concomitant]
     Active Substance: ONDANSETRON
     Indication: Product used for unknown indication
     Dosage: 4 MG
     Route: 065
     Dates: start: 20210923
  8. PANTOPRAZOLE SODIUM [Concomitant]
     Active Substance: PANTOPRAZOLE SODIUM
     Indication: Product used for unknown indication
     Dosage: 40 MG
     Route: 065
     Dates: start: 20210930
  9. PERENTEROL [Concomitant]
     Active Substance: SACCHAROMYCES CEREVISIAE
     Indication: Product used for unknown indication
     Dosage: 250 MG
     Route: 065
     Dates: start: 20210930, end: 20211228

REACTIONS (1)
  - Gastroenteritis [Recovered/Resolved]

NARRATIVE: CASE EVENT DATE: 20210918
